FAERS Safety Report 7571713-8 (Version None)
Quarter: 2011Q2

REPORT INFORMATION
  Report Type: 
  Country: None (occurrence: None)
  Receive Date: 20110624
  Receipt Date: 20110621
  Transmission Date: 20111010
  Serious: Yes (Death, Other)
  Sender: FDA-Public Use
  Company Number: JP-GENZYME-FLUD-1000479

PATIENT
  Age: 7 Year
  Sex: Male
  Weight: 19 kg

DRUGS (14)
  1. THYMOGLOBULIN [Suspect]
     Dosage: 50 MG, QD
     Route: 042
     Dates: start: 20100423, end: 20100426
  2. FLUDARA [Suspect]
     Indication: ACUTE LYMPHOCYTIC LEUKAEMIA
  3. TEICOPLANIN [Concomitant]
     Indication: INFECTION PROPHYLAXIS
     Dosage: UNK
     Dates: start: 20100401, end: 20100416
  4. FLUDARA [Suspect]
     Indication: PREMEDICATION
     Dosage: UNK UNK, UNK
     Route: 065
     Dates: start: 20100420, end: 20100423
  5. THYMOGLOBULIN [Suspect]
     Indication: PREMEDICATION
     Dosage: 2.5 MG, ONCE
     Route: 042
     Dates: start: 20100416, end: 20100416
  6. THYMOGLOBULIN [Suspect]
     Dosage: 100 MG, QD
     Route: 042
     Dates: start: 20100505, end: 20100505
  7. MICAFUNGIN SODIUM [Concomitant]
     Indication: INFECTION PROPHYLAXIS
     Dosage: UNK
     Dates: start: 20100315, end: 20100514
  8. BIAPENEM [Concomitant]
     Indication: INFECTION PROPHYLAXIS
     Dosage: UNK
     Dates: start: 20100416, end: 20100430
  9. SULFAMETHOXAZOLE W [Concomitant]
     Indication: INFECTION PROPHYLAXIS
     Dosage: UNK
     Dates: start: 20100414, end: 20100426
  10. MEROPENEM [Concomitant]
     Indication: INFECTION PROPHYLAXIS
     Dosage: UNK
     Dates: start: 20100401, end: 20100415
  11. THYMOGLOBULIN [Suspect]
     Indication: ACUTE LYMPHOCYTIC LEUKAEMIA
     Dosage: 97.5 MG, ONCE
     Route: 042
     Dates: start: 20100416, end: 20100416
  12. MELPHALAN HYDROCHLORIDE [Concomitant]
     Indication: PREMEDICATION
     Dosage: UNK
     Dates: start: 20100424, end: 20100425
  13. TACROLIMUS [Concomitant]
     Indication: GRAFT VERSUS HOST DISEASE
     Dosage: UNK
     Dates: start: 20100427, end: 20100726
  14. PANIPENEM [Concomitant]
     Indication: INFECTION PROPHYLAXIS
     Dosage: UNK
     Dates: start: 20100501, end: 20100507

REACTIONS (5)
  - GRAFT VERSUS HOST DISEASE [None]
  - PYREXIA [None]
  - ACUTE LYMPHOCYTIC LEUKAEMIA [None]
  - RASH [None]
  - CYTOMEGALOVIRUS TEST POSITIVE [None]
